FAERS Safety Report 22102304 (Version 2)
Quarter: 2023Q1

REPORT INFORMATION
  Report Type: Spontaneous
  Country: CA (occurrence: CA)
  Receive Date: 20230316
  Receipt Date: 20230329
  Transmission Date: 20230418
  Serious: Yes (Other)
  Sender: FDA-Public Use
  Company Number: CA-002147023-NVSC2023CA055853

PATIENT
  Age: 50 Year
  Sex: Female
  Weight: 104 kg

DRUGS (15)
  1. METHOTREXATE [Suspect]
     Active Substance: METHOTREXATE
     Indication: Psoriasis
     Dosage: UNK
     Route: 065
  2. METHOTREXATE [Suspect]
     Active Substance: METHOTREXATE
     Indication: Arthralgia
     Dosage: 20 MG
     Route: 065
  3. METHOTREXATE [Suspect]
     Active Substance: METHOTREXATE
     Dosage: UNK
     Route: 065
  4. METHOTREXATE [Suspect]
     Active Substance: METHOTREXATE
     Dosage: UNK
     Route: 065
  5. BRODALUMAB [Suspect]
     Active Substance: BRODALUMAB
     Indication: Psoriasis
     Dosage: 210 MG, QW
     Route: 058
  6. BRODALUMAB [Suspect]
     Active Substance: BRODALUMAB
     Dosage: 210 MG
     Route: 058
  7. BRODALUMAB [Suspect]
     Active Substance: BRODALUMAB
     Dosage: 210 MG
     Route: 058
  8. BRODALUMAB [Suspect]
     Active Substance: BRODALUMAB
     Dosage: 210 MG
     Route: 058
  9. BRODALUMAB [Suspect]
     Active Substance: BRODALUMAB
     Dosage: 210 MG
     Route: 058
  10. CELEBREX [Concomitant]
     Active Substance: CELECOXIB
     Indication: Product used for unknown indication
     Dosage: UNK, QD
     Route: 065
  11. CELEBREX [Concomitant]
     Active Substance: CELECOXIB
     Dosage: UNK
     Route: 065
  12. CELECOXIB [Concomitant]
     Active Substance: CELECOXIB
     Indication: Product used for unknown indication
     Dosage: 200 MG, BID
     Route: 048
  13. FOLIC ACID [Concomitant]
     Active Substance: FOLIC ACID
     Indication: Arthralgia
     Dosage: 5 MG
     Route: 065
  14. ROSUVASTATIN [Concomitant]
     Active Substance: ROSUVASTATIN
     Indication: Blood cholesterol abnormal
     Dosage: 5 MG, QD
     Route: 048
  15. ROSUVASTATIN [Concomitant]
     Active Substance: ROSUVASTATIN
     Dosage: 40 MG, QD
     Route: 048

REACTIONS (21)
  - Blood pressure increased [Not Recovered/Not Resolved]
  - Body temperature decreased [Not Recovered/Not Resolved]
  - Fall [Not Recovered/Not Resolved]
  - Feeling abnormal [Not Recovered/Not Resolved]
  - Gait disturbance [Not Recovered/Not Resolved]
  - Hepatic lesion [Not Recovered/Not Resolved]
  - Injection site bruising [Not Recovered/Not Resolved]
  - Injection site mass [Not Recovered/Not Resolved]
  - Injection site pain [Not Recovered/Not Resolved]
  - Injection site urticaria [Not Recovered/Not Resolved]
  - Liver function test increased [Not Recovered/Not Resolved]
  - Meniscus injury [Not Recovered/Not Resolved]
  - Onychalgia [Not Recovered/Not Resolved]
  - Polyp [Not Recovered/Not Resolved]
  - Pruritus [Not Recovered/Not Resolved]
  - Skin laceration [Not Recovered/Not Resolved]
  - Stress [Not Recovered/Not Resolved]
  - Coronary artery occlusion [Not Recovered/Not Resolved]
  - Psoriasis [Not Recovered/Not Resolved]
  - Drug ineffective for unapproved indication [Not Recovered/Not Resolved]
  - Drug ineffective [Not Recovered/Not Resolved]
